FAERS Safety Report 21183132 (Version 8)
Quarter: 2023Q4

REPORT INFORMATION
  Report Type: Report from Study
  Country: AR (occurrence: AR)
  Receive Date: 20220808
  Receipt Date: 20231207
  Transmission Date: 20240110
  Serious: Yes (Other)
  Sender: FDA-Public Use
  Company Number: AR-NOVARTISPH-NVSC2022AR106954

PATIENT
  Age: 65 Year
  Sex: Female

DRUGS (3)
  1. COSENTYX [Suspect]
     Active Substance: SECUKINUMAB
     Indication: Psoriatic arthropathy
     Dosage: 300 MG, QMO
     Route: 058
     Dates: start: 20211117, end: 20220103
  2. COSENTYX [Suspect]
     Active Substance: SECUKINUMAB
     Dosage: 300 MG, QMO
     Route: 058
     Dates: start: 20220615
  3. COSENTYX [Suspect]
     Active Substance: SECUKINUMAB
     Dosage: UNK, Q2W
     Route: 065

REACTIONS (15)
  - Hypertension [Unknown]
  - Psoriatic arthropathy [Unknown]
  - Malaise [Unknown]
  - Nervousness [Unknown]
  - Tremor [Unknown]
  - Nasopharyngitis [Not Recovered/Not Resolved]
  - Frustration tolerance decreased [Unknown]
  - Pain in extremity [Unknown]
  - Stress [Unknown]
  - Blood glucose increased [Unknown]
  - Palpitations [Unknown]
  - Epistaxis [Recovered/Resolved]
  - Bone pain [Unknown]
  - Varicose vein [Unknown]
  - Paraesthesia [Unknown]

NARRATIVE: CASE EVENT DATE: 20220429
